FAERS Safety Report 19836385 (Version 1)
Quarter: 2021Q3

REPORT INFORMATION
  Report Type: Spontaneous
  Country: US (occurrence: US)
  Receive Date: 20210915
  Receipt Date: 20210915
  Transmission Date: 20211014
  Serious: No
  Sender: FDA-Public Use
  Company Number: US-BIOHAVEN PHARMACEUTICALS-2021BHV00904

PATIENT
  Age: 66 Year
  Sex: Female
  Weight: 61.22 kg

DRUGS (4)
  1. NURTEC ODT [Suspect]
     Active Substance: RIMEGEPANT SULFATE
     Indication: MIGRAINE
     Dosage: 75 MG, EVERY 48 HOURS (EVERY OTHER DAY)
     Route: 048
     Dates: start: 20210624
  2. EPIDIOLEX [Concomitant]
     Active Substance: CANNABIDIOL
     Dosage: 100 MG, 2X/DAY
  3. FYCOMPA [Concomitant]
     Active Substance: PERAMPANEL
     Dosage: UNK
     Dates: start: 20210709
  4. CLOBAZAM. [Concomitant]
     Active Substance: CLOBAZAM
     Dosage: 10 MG, 2X/DAY

REACTIONS (4)
  - Insomnia [Not Recovered/Not Resolved]
  - Product packaging difficult to open [Not Recovered/Not Resolved]
  - Somnolence [Not Recovered/Not Resolved]
  - Fatigue [Not Recovered/Not Resolved]

NARRATIVE: CASE EVENT DATE: 2021
